FAERS Safety Report 21194197 (Version 1)
Quarter: 2022Q3

REPORT INFORMATION
  Report Type: Spontaneous
  Country: ES (occurrence: ES)
  Receive Date: 20220810
  Receipt Date: 20220810
  Transmission Date: 20221027
  Serious: Yes (Disabling)
  Sender: FDA-Public Use
  Company Number: None

PATIENT
  Age: 44 Year
  Sex: Male
  Weight: 65 kg

DRUGS (2)
  1. CARTEOLOL HYDROCHLORIDE [Suspect]
     Active Substance: CARTEOLOL HYDROCHLORIDE
     Indication: Product used for unknown indication
     Dosage: 1 DROP IN EACH EYE 1 TIME A DAY
     Route: 050
     Dates: start: 20220323
  2. DIAZEPAM [Concomitant]
     Active Substance: DIAZEPAM
     Indication: Muscle contracture
     Dosage: MEDIUM COMPRESSED OCCASIONALLY, 30 TABLETS
     Route: 065

REACTIONS (1)
  - Cough [Not Recovered/Not Resolved]

NARRATIVE: CASE EVENT DATE: 20220724
